FAERS Safety Report 23108555 (Version 3)
Quarter: 2023Q4

REPORT INFORMATION
  Report Type: Spontaneous
  Country: CA (occurrence: CA)
  Receive Date: 20231026
  Receipt Date: 20231204
  Transmission Date: 20240110
  Serious: No
  Sender: FDA-Public Use
  Company Number: CA-PFIZER INC-202300318325

PATIENT
  Age: 16 Year
  Sex: Male

DRUGS (3)
  1. NGENLA [Suspect]
     Active Substance: SOMATROGON-GHLA
     Indication: Growth hormone deficiency
     Dosage: 60 MG, WEEKLY
     Route: 058
     Dates: start: 20231003
  2. NGENLA [Suspect]
     Active Substance: SOMATROGON-GHLA
     Dosage: 60 MG, WEEKLY
     Route: 058
     Dates: start: 20231009
  3. NGENLA [Suspect]
     Active Substance: SOMATROGON-GHLA
     Dosage: 60 MG, WEEKLY
     Route: 058
     Dates: start: 20231017

REACTIONS (7)
  - Needle issue [Unknown]
  - Wrong technique in device usage process [Unknown]
  - Incorrect dose administered by device [Unknown]
  - Injection site pain [Unknown]
  - Injection site pruritus [Not Recovered/Not Resolved]
  - Injection site erythema [Not Recovered/Not Resolved]
  - Injection site swelling [Not Recovered/Not Resolved]

NARRATIVE: CASE EVENT DATE: 20231003
